FAERS Safety Report 17555873 (Version 1)
Quarter: 2020Q1

REPORT INFORMATION
  Report Type: Spontaneous
  Country: US (occurrence: US)
  Receive Date: 20200318
  Receipt Date: 20200318
  Transmission Date: 20200409
  Serious: Yes (Other)
  Sender: FDA-Public Use
  Company Number: US-HBP-2020US020335

PATIENT
  Age: 50 Year
  Sex: Female

DRUGS (1)
  1. VALCHLOR [Suspect]
     Active Substance: MECHLORETHAMINE
     Indication: CUTANEOUS T-CELL LYMPHOMA
     Dosage: UNK, QD
     Route: 061

REACTIONS (2)
  - Pain [Not Recovered/Not Resolved]
  - Foot operation [Not Recovered/Not Resolved]

NARRATIVE: CASE EVENT DATE: 20200309
